FAERS Safety Report 24670449 (Version 1)
Quarter: 2024Q4

REPORT INFORMATION
  Report Type: Spontaneous
  Country: GB (occurrence: GB)
  Receive Date: 20241127
  Receipt Date: 20241127
  Transmission Date: 20250114
  Serious: Yes (Death, Other)
  Sender: TEVA
  Company Number: GB-LDELTA-2023001481

PATIENT
  Age: 49 Year
  Sex: Male
  Weight: 83 kg

DRUGS (4)
  1. PROMETHAZINE [Suspect]
     Active Substance: PROMETHAZINE HYDROCHLORIDE
     Indication: Product used for unknown indication
     Route: 065
  2. ZOPICLONE [Concomitant]
     Active Substance: ZOPICLONE
     Indication: Product used for unknown indication
     Route: 065
  3. ALCOHOL [Concomitant]
     Active Substance: ALCOHOL
     Route: 065
  4. CLOZAPINE [Suspect]
     Active Substance: CLOZAPINE
     Indication: Schizophrenia
     Route: 065
     Dates: start: 20220203, end: 20230621

REACTIONS (7)
  - Completed suicide [Fatal]
  - Arteriosclerosis [Not Recovered/Not Resolved]
  - Bladder dilatation [Not Recovered/Not Resolved]
  - Coronary artery stenosis [Not Recovered/Not Resolved]
  - Cardiomegaly [Not Recovered/Not Resolved]
  - Myocardial fibrosis [Not Recovered/Not Resolved]
  - Pancreatic steatosis [Not Recovered/Not Resolved]

NARRATIVE: CASE EVENT DATE: 20230621
